FAERS Safety Report 25936301 (Version 2)
Quarter: 2025Q4

REPORT INFORMATION
  Report Type: Spontaneous
  Country: EU (occurrence: EU)
  Receive Date: 20251017
  Receipt Date: 20251203
  Transmission Date: 20260118
  Serious: No
  Sender: ABBVIE
  Company Number: EU-ABBVIE-6505777

PATIENT

DRUGS (1)
  1. OZURDEX [Suspect]
     Active Substance: DEXAMETHASONE
     Indication: Product used for unknown indication
     Dosage: TIME INTERVAL: AS NECESSARY: DOSE FORM: PELLET
     Route: 050

REACTIONS (1)
  - No adverse event [Unknown]
